FAERS Safety Report 15042671 (Version 2)
Quarter: 2018Q3

REPORT INFORMATION
  Report Type: Spontaneous
  Country: FR (occurrence: FR)
  Receive Date: 20180621
  Receipt Date: 20180716
  Transmission Date: 20181010
  Serious: Yes (Hospitalization, Other)
  Sender: FDA-Public Use
  Company Number: FR-BAXTER-2018BAX017353

PATIENT
  Age: 41 Year
  Sex: Female
  Weight: 45 kg

DRUGS (7)
  1. ENDOXAN 1000 MG, POUDRE POUR SOLUTIONINJECTABLE [Suspect]
     Active Substance: CYCLOPHOSPHAMIDE
     Indication: HODGKIN^S DISEASE
     Dosage: 1250 MG/M2, QCY
     Route: 042
     Dates: start: 20171205, end: 20171205
  2. PREDNISONE. [Suspect]
     Active Substance: PREDNISONE
     Indication: HODGKIN^S DISEASE
     Dosage: 40 MG/M2, QD
     Route: 048
     Dates: start: 20171205, end: 20171219
  3. BLEOMYCIN [Suspect]
     Active Substance: BLEOMYCIN SULFATE
     Indication: HODGKIN^S DISEASE
     Dosage: 10 MG/M2, QCY
     Route: 042
     Dates: start: 20171212, end: 20171212
  4. PROCARBAZINE [Suspect]
     Active Substance: PROCARBAZINE
     Indication: HODGKIN^S DISEASE
     Dosage: 100 MG/M2, QD
     Route: 048
     Dates: start: 20171205, end: 20171211
  5. DOXORUBICIN HYDROCHLORIDE. [Suspect]
     Active Substance: DOXORUBICIN HYDROCHLORIDE
     Indication: HODGKIN^S DISEASE
     Dosage: 35 MG/M2, QCY
     Route: 042
     Dates: start: 20171205, end: 20171205
  6. CELLTOP 100 MG/5 ML, SOLUTION INJECTABLE POUR PERFUSION [Suspect]
     Active Substance: ETOPOSIDE
     Indication: HODGKIN^S DISEASE
     Dosage: 200 MG/M2, QCY
     Route: 042
     Dates: start: 20171205, end: 20171205
  7. VINCRISTINE SULFATE. [Suspect]
     Active Substance: VINCRISTINE SULFATE
     Indication: HODGKIN^S DISEASE
     Dosage: 1.4 MG/M2, QCY
     Route: 042
     Dates: start: 20171212, end: 20171212

REACTIONS (4)
  - Cytomegalovirus infection [Recovering/Resolving]
  - Histiocytosis haematophagic [Recovering/Resolving]
  - Lung disorder [Recovering/Resolving]
  - Aplasia [Recovered/Resolved]

NARRATIVE: CASE EVENT DATE: 20171215
